FAERS Safety Report 23028262 (Version 1)
Quarter: 2023Q4

REPORT INFORMATION
  Report Type: Spontaneous
  Country: US (occurrence: None)
  Receive Date: 20231004
  Receipt Date: 20231004
  Transmission Date: 20240109
  Serious: Yes (Other)
  Sender: FDA-Public Use
  Company Number: None

PATIENT
  Age: 47 Year
  Sex: Female
  Weight: 54.9 kg

DRUGS (1)
  1. LEVOFLOXACIN [Suspect]
     Active Substance: LEVOFLOXACIN
     Indication: Bronchitis
     Dosage: FREQUENCY : DAILY;?
     Route: 048
     Dates: start: 20230922, end: 20230926

REACTIONS (2)
  - Tendonitis [None]
  - Erythema nodosum [None]

NARRATIVE: CASE EVENT DATE: 20230930
